FAERS Safety Report 9013628 (Version 1)
Quarter: 2013Q1

REPORT INFORMATION
  Report Type: Spontaneous
  Country: US (occurrence: None)
  Receive Date: 20130109
  Receipt Date: 20130109
  Transmission Date: 20140127
  Serious: Yes (Hospitalization)
  Sender: FDA-Public Use
  Company Number: None

PATIENT
  Age: 58 Year
  Sex: Male
  Weight: 87 kg

DRUGS (1)
  1. IBUPROFEN [Suspect]
     Dosage: 600 MG TID PO
     Route: 048
     Dates: start: 20120512, end: 20120831

REACTIONS (14)
  - Night sweats [None]
  - Chills [None]
  - Hyponatraemia [None]
  - Dyspepsia [None]
  - Hepatic enzyme increased [None]
  - Meningitis aseptic [None]
  - Dysphagia [None]
  - Headache [None]
  - Leukopenia [None]
  - Anaemia [None]
  - Pyrexia [None]
  - Rash [None]
  - Diarrhoea [None]
  - Vomiting [None]
